FAERS Safety Report 8798885 (Version 1)
Quarter: 2012Q4

REPORT INFORMATION
  Report Type: 
  Country: BR (occurrence: BR)
  Receive Date: 20120920
  Receipt Date: 20120920
  Transmission Date: 20130627
  Serious: Yes (Other)
  Sender: FDA-Public Use
  Company Number: PHHY2012BR080687

PATIENT
  Age: 72 Year
  Sex: Female

DRUGS (14)
  1. GALVUS MET [Suspect]
     Dosage: 1 DF (850/50mg) twice daily
  2. GALVUS MET [Suspect]
     Dosage: 1 DF (1000/50mg) twice daily
     Dates: start: 20111111
  3. VALSARTAN [Suspect]
     Dosage: 160 mg, QD
  4. VALSARTAN [Suspect]
     Dosage: 80 mg, daily
  5. VALSARTAN [Suspect]
     Dosage: 80 mg, BID
  6. ATENOLOL [Concomitant]
     Dosage: 50 mg, QD
  7. ATORVASTATIN [Concomitant]
     Dosage: 10 mg, QD
  8. ASA [Concomitant]
     Dosage: 100 mg, QD
  9. ASA [Concomitant]
     Dosage: 325 mg, daily
  10. GLIBENCLAMIDE [Concomitant]
     Dosage: 5 mg, QD
  11. METFORMIN [Concomitant]
     Dosage: 500 mg, QD
  12. LAXATIVES [Concomitant]
     Dosage: UNK UKN, UNK
  13. METOPROLOL SUCCINATE [Concomitant]
     Dosage: 50 mg, daily
  14. CLOPIDOGREL [Concomitant]
     Dosage: 75 mg, daily

REACTIONS (7)
  - Carotid artery stenosis [Unknown]
  - Hypertensive crisis [Unknown]
  - Headache [Unknown]
  - Blood triglycerides increased [Recovering/Resolving]
  - Blood glucose increased [Recovering/Resolving]
  - Glycosylated haemoglobin increased [Recovering/Resolving]
  - Dizziness [Unknown]
